FAERS Safety Report 7354089-0 (Version None)
Quarter: 2011Q1

REPORT INFORMATION
  Report Type: 
  Country: None (occurrence: None)
  Receive Date: 20110315
  Receipt Date: 20110309
  Transmission Date: 20110831
  Serious: Yes (Other)
  Sender: FDA-Public Use
  Company Number: US-AMGEN-US336344

PATIENT
  Age: 69 Year
  Sex: Male

DRUGS (3)
  1. IMMUNOGLOBULINS [Concomitant]
  2. NPLATE [Suspect]
     Indication: IDIOPATHIC THROMBOCYTOPENIC PURPURA
     Dosage: 100 A?G, UNK
     Route: 058
     Dates: start: 20081021, end: 20091005
  3. DANAZOL [Concomitant]

REACTIONS (2)
  - TIC [None]
  - DRUG INEFFECTIVE [None]
